FAERS Safety Report 4665782-2 (Version None)
Quarter: 2005Q2

REPORT INFORMATION
  Report Type: 
  Country: None (occurrence: None)
  Receive Date: 20050519
  Receipt Date: 20050511
  Transmission Date: 20051028
  Serious: Yes (Life-Threatening)
  Sender: FDA-Public Use
  Company Number: 200514318GDDC

PATIENT
  Age: 46 Year
  Sex: Female

DRUGS (4)
  1. FUROSEMIDE [Suspect]
     Indication: FLUID RETENTION
  2. BENDROFLUMETHIAZIDE W/ POTASSIUM CHLORIDE [Concomitant]
     Indication: FLUID RETENTION
  3. CISAPRIDE [Concomitant]
     Indication: ABDOMINAL DISTENSION
     Dosage: DOSE: UNK
  4. EBASTINE [Concomitant]
     Indication: HYPERSENSITIVITY
     Dosage: DOSE: UNK

REACTIONS (9)
  - BLOOD POTASSIUM DECREASED [None]
  - CARDIAC ARREST [None]
  - DRUG ABUSER [None]
  - ELECTROCARDIOGRAM QT CORRECTED INTERVAL PROLONGED [None]
  - ELECTROCARDIOGRAM QT PROLONGED [None]
  - ELECTROCARDIOGRAM T WAVE AMPLITUDE DECREASED [None]
  - HYPOKALAEMIA [None]
  - SYNCOPE [None]
  - VENTRICULAR FIBRILLATION [None]
